FAERS Safety Report 21396936 (Version 2)
Quarter: 2022Q4

REPORT INFORMATION
  Report Type: Spontaneous
  Country: BE (occurrence: BE)
  Receive Date: 20220930
  Receipt Date: 20221010
  Transmission Date: 20230112
  Serious: Yes (Hospitalization, Other)
  Sender: FDA-Public Use
  Company Number: BE-PFIZER INC-PV202200066582

PATIENT
  Age: 11 Year
  Sex: Male

DRUGS (2)
  1. LORAZEPAM [Suspect]
     Active Substance: LORAZEPAM
     Indication: Fear
     Dosage: 1 MG
  2. LORAZEPAM [Suspect]
     Active Substance: LORAZEPAM
     Indication: Agitation
     Dosage: 4 MG

REACTIONS (6)
  - Drug ineffective [Unknown]
  - Delirium [Unknown]
  - Agitation [Unknown]
  - Fear [Unknown]
  - Condition aggravated [Unknown]
  - Off label use [Unknown]
